FAERS Safety Report 7892789-4 (Version None)
Quarter: 2011Q4

REPORT INFORMATION
  Report Type: 
  Country: None (occurrence: None)
  Receive Date: 20111102
  Receipt Date: 20111020
  Transmission Date: 20120403
  Serious: Yes (Hospitalization)
  Sender: FDA-Public Use
  Company Number: JP-2011-11560

PATIENT
  Age: 67 Year
  Sex: Male
  Weight: 67 kg

DRUGS (11)
  1. FLUORESCITE [Suspect]
     Indication: DIAGNOSTIC PROCEDURE
     Dosage: 250 MG MILLIGRAM(S), QD, INTRAVENOUS
     Route: 042
     Dates: start: 20110915, end: 20110915
  2. DIOVAN [Concomitant]
  3. NEORAL [Concomitant]
  4. ATELEC (CLINIDIPINE) [Concomitant]
  5. MUCODYNE (CARBOCISTEINE) [Concomitant]
  6. FLUVASTATIN [Concomitant]
  7. BASEN (VOGLIBOSE) [Concomitant]
  8. PLETAL [Suspect]
     Indication: RENAL IMPAIRMENT
     Dosage: 100 MG MILLIGRAM(S), BID, ORAL
     Route: 048
     Dates: start: 20110917, end: 20110921
  9. PLETAL [Suspect]
     Indication: ARTERIOSCLEROSIS OBLITERANS
     Dosage: 100 MG MILLIGRAM(S), BID, ORAL
     Route: 048
     Dates: start: 20110917, end: 20110921
  10. NEWTOLIDE (HYDROCHLOROTHIAZIDE) [Concomitant]
  11. CELLCEPT [Concomitant]

REACTIONS (8)
  - DECREASED APPETITE [None]
  - CONJUNCTIVITIS BACTERIAL [None]
  - RENAL IMPAIRMENT [None]
  - HAEMOPHILUS INFECTION [None]
  - INFECTION [None]
  - DEHYDRATION [None]
  - HAEMODIALYSIS [None]
  - PYREXIA [None]
